FAERS Safety Report 22743270 (Version 6)
Quarter: 2023Q4

REPORT INFORMATION
  Report Type: Report from Study
  Country: CA (occurrence: CA)
  Receive Date: 20230724
  Receipt Date: 20231024
  Transmission Date: 20240109
  Serious: Yes (Hospitalization, Other)
  Sender: FDA-Public Use
  Company Number: CA-MYLANLABS-2023M1021874

PATIENT
  Age: 41 Year
  Sex: Female
  Weight: 85 kg

DRUGS (8)
  1. OGIVRI [Suspect]
     Active Substance: TRASTUZUMAB-DKST
     Indication: Breast cancer metastatic
     Dosage: 514.5 MILLIGRAM, Q3W (EVERY 3 WEEKS)
     Route: 042
     Dates: start: 20221122, end: 20231018
  2. OGIVRI [Suspect]
     Active Substance: TRASTUZUMAB-DKST
     Dosage: 514.5 MILLIGRAM, Q3W (EVERY 3 WEEKS)
     Route: 042
     Dates: start: 20221128
  3. OGIVRI [Suspect]
     Active Substance: TRASTUZUMAB-DKST
     Dosage: UNK
     Route: 042
     Dates: start: 202301
  4. OGIVRI [Suspect]
     Active Substance: TRASTUZUMAB-DKST
     Dosage: UNK (STRAT DATE: 06-APR-2023)
     Route: 042
  5. OGIVRI [Suspect]
     Active Substance: TRASTUZUMAB-DKST
     Dosage: UNK (START DATE: 25-APR-2023)
     Route: 042
  6. OGIVRI [Suspect]
     Active Substance: TRASTUZUMAB-DKST
     Dosage: UNK (START DATE: 18-MAY-2023)
     Route: 065
  7. OGIVRI [Suspect]
     Active Substance: TRASTUZUMAB-DKST
     Dosage: UNK (START DATE: 24-AUG-2023)
     Route: 065
  8. OGIVRI [Suspect]
     Active Substance: TRASTUZUMAB-DKST
     Dosage: UNK (START DATE: 21-SEP-2023)
     Route: 065

REACTIONS (7)
  - Gallbladder disorder [Unknown]
  - Cholecystitis [Unknown]
  - Weight increased [Recovering/Resolving]
  - Infection [Unknown]
  - Weight decreased [Unknown]
  - Off label use [Unknown]
  - Vomiting [Unknown]

NARRATIVE: CASE EVENT DATE: 20230223
